FAERS Safety Report 8993166 (Version 1)
Quarter: 2013Q1

REPORT INFORMATION
  Report Type: Spontaneous
  Country: CH (occurrence: CH)
  Receive Date: 20130102
  Receipt Date: 20130102
  Transmission Date: 20140127
  Serious: Yes (Hospitalization, Other)
  Sender: FDA-Public Use
  Company Number: CH-JNJFOC-20121211671

PATIENT
  Age: 1 Day
  Sex: Female
  Weight: 2.78 kg

DRUGS (7)
  1. TRAMAL [Suspect]
     Indication: FOETAL EXPOSURE DURING PREGNANCY
     Dosage: 1 TO 2 PER DAY
     Route: 064
  2. TRAMAL [Suspect]
     Indication: FOETAL EXPOSURE DURING PREGNANCY
     Route: 064
     Dates: start: 2010, end: 201112
  3. TEMESTA [Suspect]
     Indication: FOETAL EXPOSURE DURING PREGNANCY
     Route: 064
     Dates: start: 2012
  4. TRANXILIUM [Suspect]
     Indication: FOETAL EXPOSURE DURING PREGNANCY
     Route: 064
     Dates: start: 2012
  5. SERTRALINE [Suspect]
     Indication: FOETAL EXPOSURE DURING PREGNANCY
     Route: 064
     Dates: end: 201206
  6. IMOVANE [Suspect]
     Indication: FOETAL EXPOSURE DURING PREGNANCY
     Route: 064
  7. SEROQUEL [Suspect]
     Indication: FOETAL EXPOSURE DURING PREGNANCY
     Route: 064

REACTIONS (4)
  - Neonatal respiratory distress syndrome [Recovered/Resolved]
  - Hypotonia neonatal [Recovered/Resolved]
  - Bradycardia [Recovered/Resolved]
  - Foetal exposure during pregnancy [Recovered/Resolved]
